FAERS Safety Report 8164199-6 (Version None)
Quarter: 2012Q1

REPORT INFORMATION
  Report Type: 
  Country: None (occurrence: None)
  Receive Date: 20120221
  Receipt Date: 20120210
  Transmission Date: 20120608
  Serious: Yes (Other)
  Sender: FDA-Public Use
  Company Number: FRA-CLT-2012004

PATIENT
  Age: 13 Month
  Sex: Male

DRUGS (1)
  1. CYSTADANE - BETAINE ANHYDROUS -ORAL POWDER - S [Suspect]
     Indication: VITAMIN B12 DEFICIENCY
     Dosage: 250 MG EVERY DAY, ORAL
     Route: 048
     Dates: start: 20101125

REACTIONS (10)
  - HYPERTHERMIA [None]
  - ANAEMIA [None]
  - FEBRILE CONVULSION [None]
  - RHINITIS [None]
  - URINARY TRACT INFECTION [None]
  - ESCHERICHIA INFECTION [None]
  - COUGH [None]
  - ENTEROCOCCAL INFECTION [None]
  - PSYCHOMOTOR RETARDATION [None]
  - CONVULSION [None]
